FAERS Safety Report 8643289 (Version 2)
Quarter: 2012Q4

REPORT INFORMATION
  Report Type: 
  Country: US (occurrence: US)
  Receive Date: 20120629
  Receipt Date: 20120924
  Transmission Date: 20130627
  Serious: Yes (Other)
  Sender: FDA-Public Use
  Company Number: PHEH2012US004546

PATIENT
  Age: 28 None
  Sex: Male
  Weight: 87.08 kg

DRUGS (5)
  1. GILENYA [Suspect]
     Indication: RELAPSING-REMITTING MULTIPLE SCLEROSIS
     Dosage: 0.5 mg, QD
     Route: 048
     Dates: start: 20111020, end: 20120322
  2. OXYBUTYNIN [Concomitant]
     Indication: BLADDER DYSFUNCTION
     Dosage: 5 mg, TID
     Route: 048
  3. CALCIUM CARBONATE [Concomitant]
     Dosage: 1.25 g, BID
     Route: 048
  4. COLECALCIFEROL [Concomitant]
     Dosage: 2000 IU, QD
     Route: 048
  5. FISH OIL [Concomitant]
     Dosage: 3000, QD
     Route: 048

REACTIONS (5)
  - Perivascular dermatitis [Recovered/Resolved]
  - CD4 lymphocytes decreased [Recovered/Resolved]
  - Pityriasis lichenoides et varioliformis acuta [Unknown]
  - Skin lesion [Recovering/Resolving]
  - Rash [Recovered/Resolved]
